FAERS Safety Report 6983772-1 (Version None)
Quarter: 2010Q3

REPORT INFORMATION
  Report Type: 
  Country: None (occurrence: None)
  Receive Date: 20100914
  Receipt Date: 20080507
  Transmission Date: 20110219
  Serious: Yes (Death, Hospitalization)
  Sender: FDA-Public Use
  Company Number: US-WYE-H07165508

PATIENT
  Age: 14 Month
  Sex: Female
  Weight: 11.8 kg

DRUGS (4)
  1. IBUPROFEN [Suspect]
     Indication: PYREXIA
     Dosage: UNKNOWN
     Route: 048
     Dates: start: 20020119, end: 20020119
  2. ACETAMINOPHEN [Suspect]
     Indication: PYREXIA
     Route: 048
     Dates: start: 20020119, end: 20020119
  3. PENICILLIN [Suspect]
     Indication: PROPHYLAXIS
     Dosage: 1 TBSP EVERY 1 DAY
     Route: 048
     Dates: end: 20020119
  4. ROCEPHIN [Suspect]
     Indication: SEPSIS
     Route: 042
     Dates: start: 20020119, end: 20020120

REACTIONS (6)
  - ANAEMIA [None]
  - CONVULSION [None]
  - HAEMOLYSIS [None]
  - MULTI-ORGAN FAILURE [None]
  - SHOCK [None]
  - VOMITING [None]
